FAERS Safety Report 5660990-6 (Version None)
Quarter: 2008Q1

REPORT INFORMATION
  Report Type: 
  Country: None (occurrence: None)
  Receive Date: 20080311
  Receipt Date: 20080220
  Transmission Date: 20080703
  Serious: Yes (Other)
  Sender: FDA-Public Use
  Company Number: US-PFIZER INC-2008016726

PATIENT
  Age: 61 Year
  Sex: Female
  Weight: 81.6 kg

DRUGS (2)
  1. LYRICA [Suspect]
     Indication: FIBROMYALGIA
  2. ANTIDEPRESSANTS [Concomitant]

REACTIONS (2)
  - FALL [None]
  - LOSS OF CONSCIOUSNESS [None]
